FAERS Safety Report 8770449 (Version 2)
Quarter: 2012Q4

REPORT INFORMATION
  Report Type: 
  Country: GB (occurrence: GB)
  Receive Date: 20120906
  Receipt Date: 20120913
  Transmission Date: 20130627
  Serious: Yes (Other)
  Sender: FDA-Public Use
  Company Number: GB-SANOFI-AVENTIS-2012SA062562

PATIENT
  Age: 77 Year
  Sex: Female

DRUGS (16)
  1. PLAQUENIL [Suspect]
     Indication: RHEUMATOID ARTHRITIS
     Route: 048
     Dates: start: 201110
  2. AZATHIOPRINE [Concomitant]
     Route: 065
     Dates: start: 201003
  3. PREDNISOLONE [Concomitant]
     Route: 065
     Dates: start: 2008
  4. LOSARTAN [Concomitant]
     Route: 065
     Dates: start: 1992
  5. DIURETICS [Concomitant]
     Route: 065
     Dates: start: 1992
  6. CO-CODAMOL [Concomitant]
     Dosage: strength: 8/500
     Dates: start: 2005
  7. MEBEVERINE [Concomitant]
     Route: 065
     Dates: start: 2000
  8. FEXOFENADINE [Concomitant]
     Route: 065
     Dates: start: 2000
  9. SERETIDE [Concomitant]
     Dosage: strength: 250, form-puff
     Dates: start: 2008
  10. SALBUTAMOL [Concomitant]
  11. GLICLAZIDE [Concomitant]
     Dosage: dose: 80 mg X 3
     Dates: start: 2006
  12. METFORMIN [Concomitant]
     Dates: start: 2000
  13. LANSOPRAZOLE [Concomitant]
     Dates: start: 2008
  14. MOTILIUM [Concomitant]
     Dosage: bd/td
     Dates: start: 2009
  15. ATORVASTATIN [Concomitant]
     Dates: start: 2005
  16. FLIXONASE [Concomitant]
     Dosage: 2 df on rising
     Dates: start: 2000

REACTIONS (5)
  - Abscess [Not Recovered/Not Resolved]
  - Pruritus [Not Recovered/Not Resolved]
  - Mass [Recovered/Resolved]
  - Infection susceptibility increased [Not Recovered/Not Resolved]
  - Excoriation [Not Recovered/Not Resolved]
